FAERS Safety Report 16317690 (Version 1)
Quarter: 2019Q2

REPORT INFORMATION
  Report Type: Spontaneous
  Country: NL (occurrence: NL)
  Receive Date: 20190516
  Receipt Date: 20190516
  Transmission Date: 20190711
  Serious: Yes (Life-Threatening)
  Sender: FDA-Public Use
  Company Number: NL-TEVA-2019-NL-1049076

PATIENT
  Age: 77 Year
  Sex: Female
  Weight: 72 kg

DRUGS (9)
  1. PRAMIPEXOL 0.125MG [Concomitant]
     Dosage: 125 MICROGRAM DAILY; 1DD1
  2. CARVEDILOL 25MG [Concomitant]
     Active Substance: CARVEDILOL
     Dosage: 3DD1
  3. TRAMADOL 50MG [Concomitant]
     Active Substance: TRAMADOL
     Dosage: 2DD2
  4. COLCHICINE 0.5MG [Concomitant]
     Dosage: 2DD1
     Route: 065
  5. FENPROCOUMON TABLET 3MG [Concomitant]
     Active Substance: PHENPROCOUMON
     Dosage: 1DD BY APPOINTMENT
     Route: 065
  6. PANTOPRAZOL 40MG [Concomitant]
     Active Substance: PANTOPRAZOLE SODIUM
     Dosage: 2DD1
     Route: 065
  7. BUMETANIDE. [Suspect]
     Active Substance: BUMETANIDE
     Indication: PRODUCT USED FOR UNKNOWN INDICATION
     Dosage: 2X DD 3 MG
     Route: 065
     Dates: start: 2006
  8. ALLOPURINOL 100MG [Concomitant]
     Active Substance: ALLOPURINOL
     Dosage: 200 MILLIGRAM DAILY; 1DD2
  9. TOLBUTAMIDE 500MG [Concomitant]
     Dosage: 3DD1
     Route: 065

REACTIONS (2)
  - Hypomagnesaemia [Recovered/Resolved]
  - Hypocalcaemia [Recovering/Resolving]

NARRATIVE: CASE EVENT DATE: 20190423
